FAERS Safety Report 15049554 (Version 1)
Quarter: 2018Q2

REPORT INFORMATION
  Report Type: Spontaneous
  Country: FR (occurrence: FR)
  Receive Date: 20180622
  Receipt Date: 20180622
  Transmission Date: 20180711
  Serious: Yes (Hospitalization)
  Sender: FDA-Public Use
  Company Number: FR-BAYER-2018-117792

PATIENT
  Age: 72 Year
  Sex: Male
  Weight: 68.5 kg

DRUGS (4)
  1. OFLOXACIN. [Suspect]
     Active Substance: OFLOXACIN
     Indication: ABSCESS
     Dosage: 400 MG, QD
     Route: 048
     Dates: start: 20180405, end: 20180517
  2. PEGAPTANIB [Suspect]
     Active Substance: PEGAPTANIB
  3. STIVARGA [Suspect]
     Active Substance: REGORAFENIB
     Indication: RECTAL CANCER STAGE IV
     Dosage: 120 MG, QD
     Route: 048
     Dates: start: 20180423, end: 20180510
  4. FLAGYL [Suspect]
     Active Substance: METRONIDAZOLE\METRONIDAZOLE HYDROCHLORIDE
     Indication: ABSCESS
     Dosage: 1500 MG, QD
     Route: 048
     Dates: start: 20180405, end: 20180510

REACTIONS (1)
  - Encephalopathy [Not Recovered/Not Resolved]

NARRATIVE: CASE EVENT DATE: 20180510
